FAERS Safety Report 17607692 (Version 1)
Quarter: 2020Q1

REPORT INFORMATION
  Report Type: Report from Study
  Country: US (occurrence: US)
  Receive Date: 20200331
  Receipt Date: 20200331
  Transmission Date: 20200409
  Serious: Yes (Hospitalization)
  Sender: FDA-Public Use
  Company Number: NVSC2020US088374

PATIENT
  Age: 2 Year
  Sex: Female
  Weight: 13.3 kg

DRUGS (6)
  1. AUGMENTINE [Concomitant]
     Active Substance: AMOXICILLIN\CLAVULANATE POTASSIUM
     Indication: ANTIBIOTIC THERAPY
     Dosage: 45 MG/KG, UNKNOWN
     Route: 065
     Dates: start: 20200303, end: 20200306
  2. CEFTRIAXONE. [Concomitant]
     Active Substance: CEFTRIAXONE
     Dosage: 50 MG/KG, UNKNOWN
     Route: 065
     Dates: start: 20200229
  3. CEFTRIAXONE. [Concomitant]
     Active Substance: CEFTRIAXONE
     Dosage: 50 MG/KG, UNKNOWN
     Route: 065
  4. ZOLGENSMA [Suspect]
     Active Substance: ONASEMNOGENE ABEPARVOVEC-XIOI
     Indication: PRODUCT USED FOR UNKNOWN INDICATION
     Dosage: UNK
     Route: 065
  5. AMPICILLIN [Concomitant]
     Active Substance: AMPICILLIN
     Indication: ANTIBIOTIC THERAPY
     Dosage: 50 MG/KG, UNKNOWN
     Route: 065
     Dates: start: 20200228
  6. CEFTRIAXONE. [Concomitant]
     Active Substance: CEFTRIAXONE
     Indication: ANTIBIOTIC THERAPY
     Dosage: 50 MG/KG, UNKNOWN
     Route: 065
     Dates: start: 20200225

REACTIONS (4)
  - Cough [Unknown]
  - Pyrexia [Unknown]
  - Pneumonia [Recovered/Resolved]
  - Metapneumovirus infection [Recovered/Resolved]

NARRATIVE: CASE EVENT DATE: 20200222
